FAERS Safety Report 7932706 (Version 2)
Quarter: 2012Q4

REPORT INFORMATION
  Report Type: 
  Country: US (occurrence: US)
  Receive Date: 20110506
  Receipt Date: 20121213
  Transmission Date: 20130627
  Serious: Yes (Hospitalization)
  Sender: FDA-Public Use
  Company Number: US-US-EMD SERONO, INC.-7056273

PATIENT
  Age: 34 Year
  Sex: Female

DRUGS (2)
  1. REBIF [Suspect]
     Indication: MULTIPLE SCLEROSIS
     Route: 058
     Dates: start: 20101026, end: 20110412
  2. VICOPROFEN [Concomitant]
     Indication: ARTHRALGIA

REACTIONS (7)
  - Pneumonia respiratory syncytial viral [Recovering/Resolving]
  - Dysphagia [Unknown]
  - Nausea [Unknown]
  - Eye pain [Unknown]
  - Vision blurred [Unknown]
  - Urinary incontinence [Unknown]
  - Influenza like illness [Unknown]
